FAERS Safety Report 25436865 (Version 1)
Quarter: 2025Q2

REPORT INFORMATION
  Report Type: Spontaneous
  Country: US (occurrence: US)
  Receive Date: 20250615
  Receipt Date: 20250615
  Transmission Date: 20250716
  Serious: No
  Sender: SANOFI AVENTIS
  Company Number: US-SA-2025SA168229

PATIENT
  Sex: Female

DRUGS (8)
  1. AUBAGIO [Suspect]
     Active Substance: TERIFLUNOMIDE
     Indication: Product used for unknown indication
  2. ARMODAFINIL [Concomitant]
     Active Substance: ARMODAFINIL
  3. CELEBREX [Concomitant]
     Active Substance: CELECOXIB
  4. DALFAMPRIDINE [Concomitant]
     Active Substance: DALFAMPRIDINE
  5. VALIUM [Concomitant]
     Active Substance: DIAZEPAM
  6. KEPPRA [Concomitant]
     Active Substance: LEVETIRACETAM
  7. PERCOCET [Concomitant]
     Active Substance: ACETAMINOPHEN\OXYCODONE HYDROCHLORIDE
  8. VESICARE [Concomitant]
     Active Substance: SOLIFENACIN SUCCINATE

REACTIONS (1)
  - Fatigue [Unknown]
